FAERS Safety Report 18177989 (Version 1)
Quarter: 2020Q3

REPORT INFORMATION
  Report Type: Spontaneous
  Country: US (occurrence: US)
  Receive Date: 20200821
  Receipt Date: 20200821
  Transmission Date: 20201103
  Serious: No
  Sender: FDA-Public Use
  Company Number: US-UNITED THERAPEUTICS-UNT-2020-011794

PATIENT
  Age: 48 Year
  Sex: Male
  Weight: 99.77 kg

DRUGS (6)
  1. REMODULIN [Suspect]
     Active Substance: TREPROSTINIL
     Indication: PULMONARY ARTERIAL HYPERTENSION
     Dosage: UNK, CONTINUING
     Route: 058
     Dates: start: 20200806
  2. LETAIRIS [Concomitant]
     Active Substance: AMBRISENTAN
     Indication: PRODUCT USED FOR UNKNOWN INDICATION
     Route: 065
  3. REMODULIN [Suspect]
     Active Substance: TREPROSTINIL
     Dosage: UNK (INCREASED DOSE), CONTINUING
     Route: 058
     Dates: start: 20200811
  4. REMODULIN [Suspect]
     Active Substance: TREPROSTINIL
     Dosage: 0.010 ?G/KG, CONTINUING
     Route: 058
  5. SILDENAFIL CITRATE. [Concomitant]
     Active Substance: SILDENAFIL CITRATE
     Indication: PRODUCT USED FOR UNKNOWN INDICATION
     Route: 065
  6. REMODULIN [Suspect]
     Active Substance: TREPROSTINIL
     Indication: PULMONARY ARTERIAL HYPERTENSION
     Dosage: UNK UNK, CONTINUING
     Route: 041

REACTIONS (9)
  - Fall [Recovered/Resolved with Sequelae]
  - Infusion site pain [Recovered/Resolved]
  - Pain in extremity [Unknown]
  - Head injury [Unknown]
  - Limb injury [Unknown]
  - Infusion site swelling [Unknown]
  - Infusion site warmth [Recovering/Resolving]
  - Peripheral swelling [Unknown]
  - Infusion site erythema [Unknown]

NARRATIVE: CASE EVENT DATE: 202008
